FAERS Safety Report 8553926 (Version 3)
Quarter: 2013Q2

REPORT INFORMATION
  Report Type: Report from Study
  Country: US (occurrence: US)
  Receive Date: 20120509
  Receipt Date: 20130529
  Transmission Date: 20140414
  Serious: Yes (Other)
  Sender: FDA-Public Use
  Company Number: US-ROCHE-1063090

PATIENT
  Age: 17 Year
  Sex: Male

DRUGS (2)
  1. BEVACIZUMAB [Suspect]
     Indication: EPENDYMOMA
     Route: 042
  2. IRINOTECAN HYDROCHLORIDE [Suspect]
     Indication: EPENDYMOMA
     Dosage: 125 MG/M2 - 250 MG/M2
     Route: 042

REACTIONS (1)
  - Osteonecrosis [Recovered/Resolved]
